FAERS Safety Report 4505149-0 (Version None)
Quarter: 2004Q4

REPORT INFORMATION
  Report Type: 
  Country: None (occurrence: None)
  Receive Date: 20041116
  Receipt Date: 20040827
  Transmission Date: 20050328
  Serious: No
  Sender: FDA-Public Use
  Company Number: 8763

PATIENT
  Age: 71 Year
  Sex: Female

DRUGS (4)
  1. AMIODARONE [Suspect]
     Indication: ATRIAL FIBRILLATION
     Dosage: PO
     Route: 048
     Dates: start: 20020901, end: 20030501
  2. ASPIRIN [Concomitant]
  3. PERINDOPRIL [Concomitant]
  4. LOSARTAN [Concomitant]

REACTIONS (1)
  - ATAXIA [None]
